FAERS Safety Report 10173004 (Version 1)
Quarter: 2014Q2

REPORT INFORMATION
  Report Type: Spontaneous
  Country: GB (occurrence: GB)
  Receive Date: 20140515
  Receipt Date: 20140515
  Transmission Date: 20141212
  Serious: Yes (Hospitalization)
  Sender: FDA-Public Use
  Company Number: PHHY2014GB056240

PATIENT
  Age: 60 Year
  Sex: Female

DRUGS (4)
  1. AFINITOR [Suspect]
     Indication: BREAST CANCER
     Dosage: 10 MG, QD
     Route: 048
     Dates: start: 20130204, end: 20130306
  2. DICLOFENAC SODIUM SANDOZ [Suspect]
     Dosage: 50 MG, QID
     Route: 048
     Dates: start: 2004, end: 20130326
  3. DENOSUMAB [Concomitant]
     Indication: METASTASES TO BONE
     Route: 058
  4. EXEMESTANE [Concomitant]
     Indication: BREAST CANCER

REACTIONS (7)
  - Abdominal distension [Unknown]
  - Hypocalcaemia [Unknown]
  - Duodenal ulcer perforation [Unknown]
  - Stomatitis [Unknown]
  - Abdominal pain [Unknown]
  - Anaemia [Unknown]
  - Diarrhoea [Unknown]
